FAERS Safety Report 20411187 (Version 1)
Quarter: 2022Q1

REPORT INFORMATION
  Report Type: Spontaneous
  Country: JP (occurrence: JP)
  Receive Date: 20220201
  Receipt Date: 20220201
  Transmission Date: 20220423
  Serious: Yes (Hospitalization, Other)
  Sender: FDA-Public Use
  Company Number: JP-BAYER-2022A010870

PATIENT
  Age: 79 Year
  Sex: Male

DRUGS (1)
  1. IOPAMIRON [Suspect]
     Active Substance: IOPAMIDOL
     Indication: Peripheral arteriogram
     Dosage: 100 ML, SINGLE. 3 ML/ SEC, (DELIVERY TIME 33 SEC), DELIVERY SITE ELBOW
     Route: 042
     Dates: start: 20220119, end: 20220119

REACTIONS (3)
  - Anaphylactic shock [Recovered/Resolved]
  - Kounis syndrome [Recovering/Resolving]
  - Myocardial ischaemia [Recovering/Resolving]

NARRATIVE: CASE EVENT DATE: 20220119
